FAERS Safety Report 20300031 (Version 2)
Quarter: 2022Q4

REPORT INFORMATION
  Report Type: Spontaneous
  Country: US (occurrence: US)
  Receive Date: 20220105
  Receipt Date: 20221107
  Transmission Date: 20230113
  Serious: Yes (Other)
  Sender: FDA-Public Use
  Company Number: US-VERTEX PHARMACEUTICALS-2021-020419

PATIENT
  Age: 35 Year
  Sex: Male

DRUGS (4)
  1. TRIKAFTA [Interacting]
     Active Substance: ELEXACAFTOR\IVACAFTOR\TEZACAFTOR
     Indication: Cystic fibrosis
     Dosage: (200MG ELEXA/ 100MG TEZA/ 150MG IVA) AM ; (150MG IVA) PM
     Route: 048
  2. TACROLIMUS [Interacting]
     Active Substance: TACROLIMUS
     Indication: Liver transplant
     Dosage: UNK FREQUENCY
     Route: 065
  3. TACROLIMUS [Interacting]
     Active Substance: TACROLIMUS
     Indication: Lung transplant
  4. SIROLIMUS [Concomitant]
     Active Substance: SIROLIMUS

REACTIONS (5)
  - Drug interaction [Unknown]
  - Immunosuppressant drug level increased [Unknown]
  - Acute kidney injury [Unknown]
  - Toxicity to various agents [Unknown]
  - Abdominal discomfort [Unknown]

NARRATIVE: CASE EVENT DATE: 20211213
